FAERS Safety Report 4423375-6 (Version None)
Quarter: 2004Q3

REPORT INFORMATION
  Report Type: 
  Country: None (occurrence: None)
  Receive Date: 20040713
  Receipt Date: 20040413
  Transmission Date: 20050211
  Serious: No
  Sender: FDA-Public Use
  Company Number: PHEH2004US03039

PATIENT
  Age: 76 Year
  Sex: Female
  Weight: 51.2 kg

DRUGS (3)
  1. ELIDEL [Suspect]
     Indication: BLEPHARITIS
     Dosage: TOPICAL
     Route: 061
     Dates: start: 20040311, end: 20040311
  2. INDERAL [Concomitant]
  3. MULTIVITAMINS (PANTHENOL, RETINOL) [Concomitant]

REACTIONS (7)
  - APPLICATION SITE BURNING [None]
  - APPLICATION SITE ERYTHEMA [None]
  - APPLICATION SITE IRRITATION [None]
  - APPLICATION SITE PRURITUS [None]
  - APPLICATION SITE SWELLING [None]
  - DRUG INEFFECTIVE [None]
  - LACRIMATION INCREASED [None]
